FAERS Safety Report 5463461-5 (Version None)
Quarter: 2007Q3

REPORT INFORMATION
  Report Type: 
  Country: None (occurrence: None)
  Receive Date: 20070920
  Receipt Date: 20070911
  Transmission Date: 20080115
  Serious: Yes (Death)
  Sender: FDA-Public Use
  Company Number: DE-PFIZER INC-2007044143

PATIENT
  Sex: Female
  Weight: 50 kg

DRUGS (4)
  1. SUTENT [Suspect]
     Indication: METASTATIC RENAL CELL CARCINOMA
     Dosage: DAILY DOSE:50MG
     Route: 048
  2. FUROSEMIDE [Concomitant]
     Route: 048
  3. OMEPRAZOLE [Concomitant]
     Route: 048
  4. DICLOFENAC [Concomitant]
     Route: 048

REACTIONS (3)
  - CEREBRAL INFARCTION [None]
  - METASTATIC RENAL CELL CARCINOMA [None]
  - NEOPLASM PROGRESSION [None]
